FAERS Safety Report 13016924 (Version 6)
Quarter: 2022Q1

REPORT INFORMATION
  Report Type: Report from Study
  Country: GT (occurrence: GT)
  Receive Date: 20161212
  Receipt Date: 20220112
  Transmission Date: 20220423
  Serious: Yes (Death, Hospitalization)
  Sender: FDA-Public Use
  Company Number: PHHY2016GT167139

PATIENT
  Age: 49 Year
  Sex: Male

DRUGS (1)
  1. GLIVEC [Suspect]
     Active Substance: IMATINIB MESYLATE
     Indication: Chronic myeloid leukaemia
     Dosage: 800 MG (2X400 MG)
     Route: 065

REACTIONS (12)
  - Cardiac arrest [Fatal]
  - Chronic myeloid leukaemia transformation [Unknown]
  - Toothache [Unknown]
  - Diarrhoea haemorrhagic [Unknown]
  - Gastric infection [Unknown]
  - Malaise [Unknown]
  - Platelet count decreased [Unknown]
  - Coma [Unknown]
  - General physical health deterioration [Unknown]
  - Malnutrition [Unknown]
  - Swelling [Unknown]
  - Weight decreased [Unknown]

NARRATIVE: CASE EVENT DATE: 20220110
